FAERS Safety Report 5905874-0 (Version None)
Quarter: 2008Q4

REPORT INFORMATION
  Report Type: 
  Country: None (occurrence: None)
  Receive Date: 20081002
  Receipt Date: 20080926
  Transmission Date: 20090506
  Serious: Yes (Other)
  Sender: FDA-Public Use
  Company Number: US-ASTRAZENECA-2008UW20646

PATIENT
  Age: 16 Year
  Sex: Male

DRUGS (4)
  1. SEROQUEL XR [Suspect]
     Indication: BIPOLAR DISORDER
     Route: 048
     Dates: start: 20070401
  2. SEROQUEL XR [Suspect]
     Indication: ASPERGER'S DISORDER
     Route: 048
     Dates: start: 20070401
  3. VALPROIC ACID [Concomitant]
  4. CONCERTA [Concomitant]
     Dosage: 54 MG

REACTIONS (4)
  - ADRENAL INSUFFICIENCY [None]
  - BLOOD TESTOSTERONE DECREASED [None]
  - HYPOTHYROIDISM [None]
  - INSULIN-LIKE GROWTH FACTOR DECREASED [None]
